FAERS Safety Report 22605074 (Version 1)
Quarter: 2023Q2

REPORT INFORMATION
  Report Type: Spontaneous
  Country: US (occurrence: US)
  Receive Date: 20230615
  Receipt Date: 20230615
  Transmission Date: 20230722
  Serious: Yes (Life-Threatening, Hospitalization, Other)
  Sender: FDA-Public Use
  Company Number: US-PFIZER INC-PV202300104638

PATIENT
  Age: 51 Year
  Sex: Female

DRUGS (2)
  1. NALOXONE HCL [Suspect]
     Active Substance: NALOXONE HYDROCHLORIDE
  2. PENTAZOCINE [Suspect]
     Active Substance: PENTAZOCINE

REACTIONS (2)
  - Suicide attempt [Unknown]
  - Intentional overdose [Unknown]
